FAERS Safety Report 14475240 (Version 1)
Quarter: 2018Q1

REPORT INFORMATION
  Report Type: Spontaneous
  Country: US (occurrence: US)
  Receive Date: 20180201
  Receipt Date: 20180201
  Transmission Date: 20180509
  Serious: No
  Sender: FDA-Public Use
  Company Number: US-ASTRAZENECA-2018SE13068

PATIENT
  Age: 83 Year
  Sex: Female

DRUGS (1)
  1. NEXIUM 24HR [Suspect]
     Active Substance: ESOMEPRAZOLE MAGNESIUM
     Dosage: 1 DF, EVERYDAY (BEFORE SHE EATS), (USED FOR TWO TO THREE  YEARS)
     Route: 048

REACTIONS (2)
  - Intentional product misuse [Unknown]
  - Tremor [Unknown]
